FAERS Safety Report 6795013-9 (Version None)
Quarter: 2010Q2

REPORT INFORMATION
  Report Type: 
  Country: None (occurrence: None)
  Receive Date: 20100625
  Receipt Date: 20100614
  Transmission Date: 20101027
  Serious: Yes (Other)
  Sender: FDA-Public Use
  Company Number: PHHY2010US39322

PATIENT
  Age: 46 Year
  Sex: Female

DRUGS (2)
  1. ESTRADIOL [Suspect]
     Dosage: UNK
  2. TESTOSTERONE [Concomitant]
     Dosage: UNK

REACTIONS (9)
  - ABDOMINAL PAIN [None]
  - BILIARY DYSKINESIA [None]
  - BLOOD GONADOTROPHIN DECREASED [None]
  - BLOOD OESTROGEN INCREASED [None]
  - CHOLECYSTECTOMY [None]
  - FOCAL NODULAR HYPERPLASIA [None]
  - HEPATIC STEATOSIS [None]
  - HYPERTRIGLYCERIDAEMIA [None]
  - NAUSEA [None]
